FAERS Safety Report 21385157 (Version 7)
Quarter: 2023Q2

REPORT INFORMATION
  Report Type: Report from Study
  Country: CN (occurrence: None)
  Receive Date: 20220928
  Receipt Date: 20230621
  Transmission Date: 20230722
  Serious: Yes (Hospitalization)
  Sender: FDA-Public Use
  Company Number: CN-ROCHE-3184403

PATIENT
  Age: 38 Year
  Sex: Male
  Weight: 58.7 kg

DRUGS (13)
  1. PEGINTERFERON ALFA-2A [Suspect]
     Active Substance: PEGINTERFERON ALFA-2A
     Indication: Hepatitis B
     Dosage: DOSE LAST STUDY DRUG ADMIN PRIOR SAE IS 135 UG.?START DATE OF MOST RECENT DOSE OF STUDY DRUG PRIOR T
     Route: 042
     Dates: start: 20210811
  2. RG-6346 [Suspect]
     Active Substance: RG-6346
     Indication: Hepatitis B
     Dosage: DOSE LAST STUDY DRUG ADMIN PRIOR SAE IS 200 MG. ?START DATE OF MOST RECENT DOSE OF STUDY DRUG PRIOR
     Route: 058
     Dates: start: 20210811
  3. TENOFOVIR ALAFENAMIDE [Suspect]
     Active Substance: TENOFOVIR ALAFENAMIDE
     Indication: Hepatitis B
     Dosage: DOSE LAST STUDY DRUG ADMIN PRIOR SAE IS 25 MG. START DATE OF MOST RECENT DOSE OF STUDY DRUG PRIOR TO
     Route: 048
     Dates: start: 20210811
  4. COMPOUND MENTHOL NASAL [Concomitant]
     Indication: Rhinitis
     Route: 045
     Dates: start: 20211228, end: 202203
  5. COMPOUND MENTHOL NASAL [Concomitant]
     Indication: Sinusitis
     Route: 045
     Dates: start: 20211228, end: 202203
  6. MAYINGLONG MUSK [Concomitant]
     Indication: Haemorrhoidal haemorrhage
     Route: 054
     Dates: start: 20220122, end: 20220124
  7. OMEPRAZOLE [Concomitant]
     Active Substance: OMEPRAZOLE
     Indication: Abdominal pain
     Route: 048
     Dates: start: 20220315, end: 20220315
  8. OMEPRAZOLE [Concomitant]
     Active Substance: OMEPRAZOLE
     Indication: Abdominal distension
     Route: 048
     Dates: start: 20220509
  9. VITAMIN U [Concomitant]
     Indication: Abdominal pain
     Route: 048
     Dates: start: 20220315, end: 20220316
  10. IBUPROFEN [Concomitant]
     Active Substance: IBUPROFEN
     Indication: Prophylaxis
     Dosage: PREVENTION FOR PEG-IFN RALATED EVENTS
     Route: 048
     Dates: start: 20220518, end: 20220706
  11. TENOFOVIR ALAFENAMIDE [Concomitant]
     Active Substance: TENOFOVIR ALAFENAMIDE
     Indication: Hepatitis B
     Route: 048
     Dates: start: 20190221
  12. DOMPERIDONE [Concomitant]
     Active Substance: DOMPERIDONE
     Indication: Abdominal distension
     Route: 048
     Dates: start: 20220429
  13. BELLADONNA [Concomitant]
     Active Substance: ATROPA BELLADONNA
     Indication: Abdominal pain
     Route: 048
     Dates: start: 20220315, end: 20220316

REACTIONS (1)
  - Panic reaction [Recovered/Resolved]

NARRATIVE: CASE EVENT DATE: 20220626
